FAERS Safety Report 15584081 (Version 2)
Quarter: 2025Q3

REPORT INFORMATION
  Report Type: Spontaneous
  Country: EU (occurrence: EU)
  Receive Date: 20181105
  Receipt Date: 20250710
  Transmission Date: 20251021
  Serious: Yes (Other)
  Sender: AUROBINDO
  Company Number: EU-AUROBINDO-AUR-APL-2018-053519

PATIENT
  Age: 50 Year
  Sex: Female

DRUGS (5)
  1. MIRTAZAPINE [Suspect]
     Active Substance: MIRTAZAPINE
     Indication: Progressive multifocal leukoencephalopathy
     Route: 065
  2. MIRTAZAPINE [Suspect]
     Active Substance: MIRTAZAPINE
     Route: 065
  3. MARAVIROC [Suspect]
     Active Substance: MARAVIROC
     Indication: Progressive multifocal leukoencephalopathy
     Route: 065
  4. LEVOTHYROXINE [Concomitant]
     Active Substance: LEVOTHYROXINE
     Indication: Product use in unapproved indication
     Route: 065
  5. OXYCODONE [Concomitant]
     Active Substance: OXYCODONE
     Indication: Product use in unapproved indication
     Route: 065

REACTIONS (4)
  - Disorientation [Unknown]
  - Quadriplegia [Unknown]
  - Dysarthria [Unknown]
  - Off label use [Unknown]
